FAERS Safety Report 5072661-8 (Version None)
Quarter: 2006Q3

REPORT INFORMATION
  Report Type: 
  Country: None (occurrence: None)
  Receive Date: 20060807
  Receipt Date: 20060802
  Transmission Date: 20061208
  Serious: Yes (Hospitalization)
  Sender: FDA-Public Use
  Company Number: IT-GLAXOSMITHKLINE-B0433231A

PATIENT
  Age: 14 Year
  Sex: Female

DRUGS (1)
  1. AUGMENTIN [Suspect]
     Indication: TONSILLITIS
     Dosage: 1MG TWICE PER DAY
     Route: 048
     Dates: start: 20060701

REACTIONS (2)
  - GENERALISED ERYTHEMA [None]
  - RASH SCARLATINIFORM [None]
